FAERS Safety Report 8151616-0 (Version None)
Quarter: 2012Q1

REPORT INFORMATION
  Report Type: 
  Country: None (occurrence: None)
  Receive Date: 20120220
  Receipt Date: 20120209
  Transmission Date: 20120608
  Serious: Yes (Hospitalization, Other)
  Sender: FDA-Public Use
  Company Number: US-ASTRAZENECA-2010SE57858

PATIENT
  Age: 65 Year
  Sex: Male
  Weight: 95.3 kg

DRUGS (5)
  1. NEXIUM [Suspect]
     Route: 048
  2. OTHER MEDICATIONS [Interacting]
     Route: 065
  3. PRILOSEC OTC [Suspect]
     Route: 048
  4. PRILOSEC [Interacting]
     Route: 048
  5. PRILOSEC [Interacting]
     Route: 048

REACTIONS (18)
  - EYE DISCHARGE [None]
  - DYSPHONIA [None]
  - DRUG INEFFECTIVE [None]
  - ADVERSE EVENT [None]
  - THROAT CANCER [None]
  - MALAISE [None]
  - VISION BLURRED [None]
  - VOCAL CORD DISORDER [None]
  - NASOPHARYNGITIS [None]
  - EYE INFECTION [None]
  - REGURGITATION [None]
  - DRUG DOSE OMISSION [None]
  - TENSION [None]
  - GASTROOESOPHAGEAL REFLUX DISEASE [None]
  - DRUG INTERACTION [None]
  - EYELID FUNCTION DISORDER [None]
  - HYPERSENSITIVITY [None]
  - CONFUSIONAL STATE [None]
